FAERS Safety Report 7121829-5 (Version None)
Quarter: 2010Q4

REPORT INFORMATION
  Report Type: 
  Country: None (occurrence: None)
  Receive Date: 20101124
  Receipt Date: 20101115
  Transmission Date: 20110411
  Serious: Yes (Other)
  Sender: FDA-Public Use
  Company Number: PHHY2010JP78355

PATIENT
  Age: 35 Year
  Sex: Female

DRUGS (3)
  1. CYCLOSPORINE [Suspect]
     Indication: OBLITERATIVE BRONCHIOLITIS
     Dosage: UNK
  2. PREDNISOLONE [Concomitant]
     Indication: OBLITERATIVE BRONCHIOLITIS
     Dosage: UNK
  3. ADRENAL HORMONE PREPARATIONS [Concomitant]
     Dosage: UNK

REACTIONS (2)
  - PNEUMOMEDIASTINUM [None]
  - SUBCUTANEOUS EMPHYSEMA [None]
